FAERS Safety Report 21537578 (Version 2)
Quarter: 2022Q4

REPORT INFORMATION
  Report Type: Spontaneous
  Country: US (occurrence: US)
  Receive Date: 20221101
  Receipt Date: 20221125
  Transmission Date: 20230113
  Serious: No
  Sender: FDA-Public Use
  Company Number: US-BIOVITRUM-2022US12399

PATIENT
  Sex: Female

DRUGS (1)
  1. KINERET [Suspect]
     Active Substance: ANAKINRA
     Indication: Rheumatoid arthritis
     Dates: start: 202209

REACTIONS (6)
  - Pain in extremity [Unknown]
  - Drug hypersensitivity [Unknown]
  - Pruritus [Unknown]
  - Urticaria [Unknown]
  - Product dose omission issue [Unknown]
  - Drug ineffective [Unknown]
